FAERS Safety Report 7421731-5 (Version None)
Quarter: 2011Q2

REPORT INFORMATION
  Report Type: 
  Country: None (occurrence: None)
  Receive Date: 20110418
  Receipt Date: 20101014
  Transmission Date: 20111010
  Serious: Yes (Hospitalization)
  Sender: FDA-Public Use
  Company Number: US-BAYER-200937072NA

PATIENT
  Age: 22 Year
  Sex: Female
  Weight: 106.12 kg

DRUGS (6)
  1. YAZ [Suspect]
     Indication: PRODUCT USED FOR UNKNOWN INDICATION
     Dosage: UNK
     Dates: start: 20070101, end: 20090101
  2. GENERAL ANESTHESIA [Concomitant]
     Dosage: UNK
     Dates: start: 20090217, end: 20090217
  3. IBUPROFEN [Concomitant]
     Dosage: UNK UNK, PRN
  4. PREVACID [Concomitant]
     Indication: GASTROOESOPHAGEAL REFLUX DISEASE
     Dosage: 30 MG, PRN
     Route: 048
     Dates: start: 20080716, end: 20080815
  5. YAZ [Suspect]
     Dosage: UNK
  6. ORTHO TRI-CYCLEN LO [Concomitant]
     Dosage: UNK
     Dates: start: 20080611, end: 20091110

REACTIONS (6)
  - CHOLELITHIASIS OBSTRUCTIVE [None]
  - NAUSEA [None]
  - CHOLECYSTITIS ACUTE [None]
  - HYPOPHAGIA [None]
  - VOMITING [None]
  - ABDOMINAL PAIN UPPER [None]
